FAERS Safety Report 8242105-3 (Version None)
Quarter: 2012Q1

REPORT INFORMATION
  Report Type: 
  Country: None (occurrence: None)
  Receive Date: 20120314
  Receipt Date: 20100616
  Transmission Date: 20120608
  Serious: No
  Sender: FDA-Public Use
  Company Number: PHHY2010US39587

PATIENT

DRUGS (2)
  1. FANAPT [Suspect]
     Dosage: 10 MG, BID
  2. NUVIGIL [Suspect]
     Dosage: UNK

REACTIONS (4)
  - FEELING ABNORMAL [None]
  - RESTLESSNESS [None]
  - COGNITIVE DISORDER [None]
  - DRUG INTERACTION [None]
